FAERS Safety Report 6133453-1 (Version None)
Quarter: 2009Q1

REPORT INFORMATION
  Report Type: 
  Country: None (occurrence: None)
  Receive Date: 20090326
  Receipt Date: 20090325
  Transmission Date: 20090719
  Serious: Yes (Disabling)
  Sender: FDA-Public Use
  Company Number: PHHO2003NL13102

PATIENT
  Sex: Female
  Weight: 73 kg

DRUGS (1)
  1. CGS 20267 T30748+ [Suspect]
     Indication: BREAST CANCER
     Dosage: 2.5 MG, QD
     Route: 048
     Dates: start: 19990818, end: 20010301

REACTIONS (2)
  - ARRHYTHMIA [None]
  - HOT FLUSH [None]
